FAERS Safety Report 11414410 (Version 1)
Quarter: 2015Q3

REPORT INFORMATION
  Report Type: Spontaneous
  Country: IT (occurrence: IT)
  Receive Date: 20150824
  Receipt Date: 20150824
  Transmission Date: 20151125
  Serious: Yes (Other)
  Sender: FDA-Public Use
  Company Number: PHHY2015IT099553

PATIENT
  Age: 25 Year
  Sex: Male

DRUGS (4)
  1. ACICLOVIR [Interacting]
     Active Substance: ACYCLOVIR
     Indication: RELAPSING-REMITTING MULTIPLE SCLEROSIS
     Dosage: 200 MG, BID
     Route: 048
  2. ALEMTUZUMAB [Interacting]
     Active Substance: ALEMTUZUMAB
     Indication: RELAPSING-REMITTING MULTIPLE SCLEROSIS
     Dosage: 12 MG, UNK
     Route: 042
  3. CHLORPHENAMINE [Interacting]
     Active Substance: CHLORPHENIRAMINE MALEATE
     Indication: RELAPSING-REMITTING MULTIPLE SCLEROSIS
     Dosage: 10 MG, QD
     Route: 065
  4. METHYLPREDNISOLONE. [Suspect]
     Active Substance: METHYLPREDNISOLONE
     Indication: RELAPSING-REMITTING MULTIPLE SCLEROSIS
     Dosage: 1 G, QD
     Route: 065

REACTIONS (7)
  - Hypophosphataemia [Unknown]
  - Renal tubular disorder [Recovered/Resolved]
  - Renal injury [Unknown]
  - Hypouricaemia [Unknown]
  - Albuminuria [Unknown]
  - Glycosuria [Unknown]
  - Drug interaction [Unknown]
